FAERS Safety Report 23689765 (Version 1)
Quarter: 2024Q1

REPORT INFORMATION
  Report Type: Spontaneous
  Country: US (occurrence: US)
  Receive Date: 20240331
  Receipt Date: 20240331
  Transmission Date: 20240410
  Serious: Yes (Hospitalization)
  Sender: FDA-Public Use
  Company Number: US-SA-SAC20240326001243

PATIENT
  Age: 57 Year
  Sex: Female

DRUGS (1)
  1. REZUROCK [Suspect]
     Active Substance: BELUMOSUDIL
     Indication: Product used for unknown indication
     Dosage: 200 MG, QD
     Route: 048
     Dates: start: 20231115

REACTIONS (3)
  - Mental disorder due to a general medical condition [Unknown]
  - Blood sodium decreased [Unknown]
  - Inappropriate schedule of product discontinuation [Unknown]
